FAERS Safety Report 8962733 (Version 3)
Quarter: 2013Q1

REPORT INFORMATION
  Report Type: Spontaneous
  Country: FR (occurrence: FR)
  Receive Date: 20121214
  Receipt Date: 20130214
  Transmission Date: 20140127
  Serious: Yes (Hospitalization)
  Sender: FDA-Public Use
  Company Number: FR-JNJFOC-20121204472

PATIENT
  Age: 48 Year
  Sex: Female

DRUGS (2)
  1. IXPRIM [Suspect]
     Indication: PRODUCT USED FOR UNKNOWN INDICATION
     Route: 048
     Dates: start: 20121111, end: 20121111
  2. LOVENOX [Suspect]
     Indication: DEEP VEIN THROMBOSIS
     Route: 058
     Dates: start: 20121111, end: 20121111

REACTIONS (8)
  - Dysphonia [Recovered/Resolved]
  - Rash [Recovered/Resolved]
  - Lip swelling [Recovered/Resolved]
  - Dyspnoea [Recovered/Resolved]
  - Face oedema [Recovered/Resolved]
  - Swollen tongue [Recovered/Resolved]
  - Erythema [Recovered/Resolved]
  - Malaise [Recovered/Resolved]
